FAERS Safety Report 14146725 (Version 1)
Quarter: 2017Q4

REPORT INFORMATION
  Report Type: Spontaneous
  Country: US (occurrence: US)
  Receive Date: 20171031
  Receipt Date: 20171031
  Transmission Date: 20180321
  Serious: No
  Sender: FDA-Public Use
  Company Number: US-PERRIGO-17US002171

PATIENT
  Sex: Female

DRUGS (1)
  1. UNISOM SLEEPTABS [Suspect]
     Active Substance: DOXYLAMINE SUCCINATE
     Indication: PRODUCT USED FOR UNKNOWN INDICATION
     Dosage: 12.5 TO 25 MG, NIGHTLY
     Route: 048
     Dates: start: 2015

REACTIONS (3)
  - Musculoskeletal disorder [Unknown]
  - Incorrect drug administration duration [Unknown]
  - Underdose [Unknown]

NARRATIVE: CASE EVENT DATE: 2015
